FAERS Safety Report 7060247-5 (Version None)
Quarter: 2010Q4

REPORT INFORMATION
  Report Type: 
  Country: None (occurrence: None)
  Receive Date: 20101025
  Receipt Date: 20101020
  Transmission Date: 20110411
  Serious: Yes (Life-Threatening)
  Sender: FDA-Public Use
  Company Number: AU-ASTRAZENECA-2010SE49767

PATIENT
  Age: 30 Year
  Sex: Male

DRUGS (6)
  1. PROPOFOL [Suspect]
     Route: 042
  2. SUXAMETHONIUM NOS [Suspect]
     Route: 065
  3. GELOFUSION [Suspect]
     Route: 065
     Dates: start: 20100818, end: 20100818
  4. ROCURONIUM BROMIDE [Suspect]
     Route: 065
  5. CEFAZOLIN SODIUM [Concomitant]
  6. MORPHINE NOS [Concomitant]

REACTIONS (6)
  - ANAPHYLACTIC REACTION [None]
  - BLOOD PRESSURE DECREASED [None]
  - BREATH SOUNDS ABNORMAL [None]
  - ERYTHEMA [None]
  - HYPOTENSION [None]
  - RESPIRATORY FAILURE [None]
